FAERS Safety Report 8987278 (Version 1)
Quarter: 2012Q4

REPORT INFORMATION
  Report Type: 
  Country: US (occurrence: US)
  Receive Date: 20121226
  Receipt Date: 20121226
  Transmission Date: 20130627
  Serious: Yes (Hospitalization)
  Sender: FDA-Public Use
  Company Number: GXBR2012US002439

PATIENT
  Age: 13 Year
  Sex: Male
  Weight: 26.3 kg

DRUGS (3)
  1. OMNITROPE [Suspect]
     Indication: UNDERWEIGHT
     Dosage: 1.6 mg, QD
     Dates: start: 201209, end: 20121214
  2. CYPROHEPTADINE [Concomitant]
     Dosage: UNK DF, UNK
  3. SODIUM BICARBONATE [Concomitant]
     Dosage: UNK DF, BID

REACTIONS (1)
  - Convulsion [Not Recovered/Not Resolved]
